FAERS Safety Report 12911787 (Version 1)
Quarter: 2016Q4

REPORT INFORMATION
  Report Type: Spontaneous
  Country: US (occurrence: US)
  Receive Date: 20161104
  Receipt Date: 20161104
  Transmission Date: 20170207
  Serious: Yes (Hospitalization, Other)
  Sender: FDA-Public Use
  Company Number: US-GLAXOSMITHKLINE-US2016GSK161774

PATIENT
  Sex: Female
  Weight: 104.3 kg

DRUGS (4)
  1. NICOTINE UNKNOWN BRAND [Suspect]
     Active Substance: NICOTINE
     Indication: SMOKING CESSATION THERAPY
  2. LYRICA [Suspect]
     Active Substance: PREGABALIN
     Indication: DIABETIC NEUROPATHY
     Dosage: 150 MG, BID
     Route: 048
  3. WELLBUTRIN [Suspect]
     Active Substance: BUPROPION HYDROCHLORIDE
     Indication: SMOKING CESSATION THERAPY
  4. NICOTINE. [Suspect]
     Active Substance: NICOTINE
     Indication: SMOKING CESSATION THERAPY

REACTIONS (10)
  - Product use issue [Recovered/Resolved]
  - White blood cell count increased [Unknown]
  - Enteritis infectious [Unknown]
  - Gastric infection [Unknown]
  - Urinary tract infection [Unknown]
  - Cystitis [Unknown]
  - Dehydration [Unknown]
  - Migraine [Unknown]
  - Off label use [Recovered/Resolved]
  - Memory impairment [Not Recovered/Not Resolved]

NARRATIVE: CASE EVENT DATE: 2015
